FAERS Safety Report 19757546 (Version 2)
Quarter: 2022Q1

REPORT INFORMATION
  Report Type: Spontaneous
  Country: PL (occurrence: PL)
  Receive Date: 20210828
  Receipt Date: 20220311
  Transmission Date: 20220423
  Serious: Yes (Life-Threatening)
  Sender: FDA-Public Use
  Company Number: None

PATIENT
  Age: 45 Year
  Sex: Female
  Weight: 67 kg

DRUGS (1)
  1. CARBOPLATIN [Suspect]
     Active Substance: CARBOPLATIN
     Indication: Product used for unknown indication
     Route: 042
     Dates: start: 20201231, end: 20201231

REACTIONS (3)
  - Dyspnoea [Unknown]
  - Erythema [Unknown]
  - Body temperature increased [Unknown]

NARRATIVE: CASE EVENT DATE: 20201231
